FAERS Safety Report 11277909 (Version 1)
Quarter: 2015Q3

REPORT INFORMATION
  Report Type: Spontaneous
  Country: FR (occurrence: FR)
  Receive Date: 20150716
  Receipt Date: 20150716
  Transmission Date: 20151125
  Serious: Yes (Other)
  Sender: FDA-Public Use
  Company Number: FR-GLAXOSMITHKLINE-FR2015GSK097612

PATIENT
  Age: 48 Year
  Sex: Male

DRUGS (2)
  1. ZINNAT [Concomitant]
     Active Substance: CEFUROXIME AXETIL
     Dosage: 250 MG, UNK
     Route: 048
     Dates: start: 20150114, end: 201501
  2. CEFUROXIME BIOGARAN [Suspect]
     Active Substance: CEFUROXIME
     Indication: PRODUCT USED FOR UNKNOWN INDICATION
     Dosage: 500 MG, BID
     Route: 048
     Dates: start: 201501, end: 201501

REACTIONS (5)
  - Swelling face [Unknown]
  - Hypersensitivity [Unknown]
  - Pharyngeal oedema [Unknown]
  - Dyspnoea [Unknown]
  - Swelling [Unknown]

NARRATIVE: CASE EVENT DATE: 20150121
